FAERS Safety Report 5897237-1 (Version None)
Quarter: 2008Q3

REPORT INFORMATION
  Report Type: 
  Country: None (occurrence: None)
  Receive Date: 20080923
  Receipt Date: 20080912
  Transmission Date: 20090109
  Serious: Yes (Other)
  Sender: FDA-Public Use
  Company Number: IPS_01200_2008

PATIENT
  Age: 70 Year
  Sex: Female

DRUGS (3)
  1. APO-GO (APO-GO PFS 5 MG/ML SOLUTION FOR INJECTION IN PRE-FILLED SYRING [Suspect]
     Indication: PARKINSON'S DISEASE
     Dosage: (5 MG PER HOUR FOR 1 YEAR 16 WEEKS 1 DAY SUBCUTANEOUS)
     Route: 058
     Dates: start: 20061110, end: 20080301
  2. MADOPAR /01585301/ [Concomitant]
  3. COMTESS [Concomitant]

REACTIONS (3)
  - INJECTION SITE ERYTHEMA [None]
  - INJECTION SITE INDURATION [None]
  - INJECTION SITE PAIN [None]
